FAERS Safety Report 10047530 (Version 4)
Quarter: 2015Q3

REPORT INFORMATION
  Report Type: Spontaneous
  Country: DK (occurrence: DK)
  Receive Date: 20140331
  Receipt Date: 20150824
  Transmission Date: 20151125
  Serious: Yes (Life-Threatening, Hospitalization)
  Sender: FDA-Public Use
  Company Number: DK-JNJFOC-20140318147

PATIENT
  Age: 57 Year
  Sex: Male
  Weight: 110 kg

DRUGS (2)
  1. MAGNYL [Concomitant]
     Active Substance: ASPIRIN
     Route: 065
  2. SIMPONI [Suspect]
     Active Substance: GOLIMUMAB
     Indication: PSORIATIC ARTHROPATHY
     Route: 058
     Dates: start: 201303, end: 20131224

REACTIONS (4)
  - Intracardiac thrombus [Unknown]
  - Left ventricular dysfunction [Not Recovered/Not Resolved]
  - Device occlusion [Unknown]
  - Acute myocardial infarction [Not Recovered/Not Resolved]

NARRATIVE: CASE EVENT DATE: 201312
